FAERS Safety Report 8087823-5 (Version None)
Quarter: 2012Q1

REPORT INFORMATION
  Report Type: 
  Country: None (occurrence: None)
  Receive Date: 20120128
  Receipt Date: 20110601
  Transmission Date: 20120608
  Serious: No
  Sender: FDA-Public Use
  Company Number: US-ABBOTT-11P-163-0730208-00

PATIENT
  Sex: Female

DRUGS (1)
  1. HUMIRA [Suspect]
     Indication: RHEUMATOID ARTHRITIS
     Route: 058
     Dates: start: 20110523

REACTIONS (5)
  - RHEUMATOID ARTHRITIS [None]
  - POOR QUALITY DRUG ADMINISTERED [None]
  - MEDICATION ERROR [None]
  - EXPIRED DRUG ADMINISTERED [None]
  - PAIN [None]
